FAERS Safety Report 6844517-9 (Version None)
Quarter: 2010Q3

REPORT INFORMATION
  Report Type: 
  Country: None (occurrence: None)
  Receive Date: 20100715
  Receipt Date: 20100504
  Transmission Date: 20110219
  Serious: Yes (Hospitalization, Other)
  Sender: FDA-Public Use
  Company Number: PHHY2010US33267

PATIENT
  Age: 34 Year
  Sex: Female

DRUGS (2)
  1. METHERGINE [Suspect]
     Indication: UTERINE ATONY
     Dosage: A SINGLE DOSE
  2. OXYTOCIN [Suspect]
     Indication: UTERINE ATONY
     Dosage: 40 UNITS

REACTIONS (10)
  - HEADACHE [None]
  - HYPERTENSION [None]
  - LETHARGY [None]
  - NAUSEA [None]
  - OEDEMA PERIPHERAL [None]
  - PLEOCYTOSIS [None]
  - SCOTOMA [None]
  - SINUS BRADYCARDIA [None]
  - SUBARACHNOID HAEMORRHAGE [None]
  - VASCULITIS CEREBRAL [None]
